FAERS Safety Report 13046714 (Version 1)
Quarter: 2016Q4

REPORT INFORMATION
  Report Type: Report from Study
  Country: None (occurrence: TW)
  Receive Date: 20161220
  Receipt Date: 20161220
  Transmission Date: 20170207
  Serious: Yes (Death, Hospitalization, Other)
  Sender: FDA-Public Use
  Company Number: TW-ABBVIE-16K-153-1790354-00

PATIENT
  Age: 65 Year
  Sex: Female
  Weight: 62 kg

DRUGS (1)
  1. HUMIRA [Suspect]
     Active Substance: ADALIMUMAB
     Indication: RHEUMATOID ARTHRITIS
     Route: 058
     Dates: start: 20140528, end: 20161107

REACTIONS (16)
  - Cardiopulmonary failure [Fatal]
  - Nephritis [Unknown]
  - Urinary sediment present [Unknown]
  - Haemoglobin decreased [Unknown]
  - Cardiac arrest [Fatal]
  - Red blood cells urine positive [Unknown]
  - Urinary tract infection [Unknown]
  - Oliguria [Unknown]
  - Cardiomegaly [Unknown]
  - White blood cells urine positive [Unknown]
  - White blood cell count increased [Unknown]
  - Arteriosclerosis [Unknown]
  - Pleural effusion [Unknown]
  - Pyrexia [Unknown]
  - Oedema [Unknown]
  - Antinuclear antibody positive [Unknown]

NARRATIVE: CASE EVENT DATE: 2016
